FAERS Safety Report 6614090-9 (Version None)
Quarter: 2010Q1

REPORT INFORMATION
  Report Type: 
  Country: None (occurrence: None)
  Receive Date: 20100304
  Receipt Date: 20100223
  Transmission Date: 20100710
  Serious: Yes (Hospitalization, Other)
  Sender: FDA-Public Use
  Company Number: PHEH2009US08137

PATIENT
  Age: 55 Year
  Sex: Male

DRUGS (4)
  1. TYZEKA [Suspect]
     Indication: HEPATITIS B
     Dosage: 600 MG, QW4
     Route: 048
     Dates: start: 20090623
  2. LIPITOR [Concomitant]
     Indication: LIPIDS INCREASED
     Dosage: 5 MG, QD
  3. LOPID [Concomitant]
     Indication: LIPIDS INCREASED
     Dosage: 600 MG, BID
  4. METOPROLOL TARTRATE [Concomitant]
     Dosage: 1000 MG, UNK

REACTIONS (5)
  - BLOOD CREATINE PHOSPHOKINASE INCREASED [None]
  - GINGIVAL BLEEDING [None]
  - LIPIDS INCREASED [None]
  - MYALGIA [None]
  - RHABDOMYOLYSIS [None]
